APPROVED DRUG PRODUCT: REVONTO
Active Ingredient: DANTROLENE SODIUM
Strength: 20MG/VIAL
Dosage Form/Route: INJECTABLE;INJECTION
Application: A078378 | Product #001 | TE Code: AP
Applicant: USWM LLC
Approved: Jul 24, 2007 | RLD: No | RS: No | Type: RX